FAERS Safety Report 17096516 (Version 1)
Quarter: 2019Q4

REPORT INFORMATION
  Report Type: Spontaneous
  Country: FR (occurrence: FR)
  Receive Date: 20191202
  Receipt Date: 20191202
  Transmission Date: 20200122
  Serious: Yes (Hospitalization, Other)
  Sender: FDA-Public Use
  Company Number: FR-AUROBINDO-AUR-APL-2019-075733

PATIENT
  Age: 26 Year
  Sex: Female

DRUGS (2)
  1. PARACETAMOL [Suspect]
     Active Substance: ACETAMINOPHEN
     Indication: ABDOMINAL PAIN LOWER
     Dosage: UNK, EPISODIC
     Route: 048
     Dates: start: 20191005, end: 20191030
  2. SPASFON (PHLOROGLUCINOL) [Suspect]
     Active Substance: PHLOROGLUCINOL
     Indication: ABDOMINAL PAIN LOWER
     Dosage: UNK, TAKEN EPISODIC
     Route: 048
     Dates: start: 20191005, end: 20191030

REACTIONS (1)
  - Agranulocytosis [Recovered/Resolved]

NARRATIVE: CASE EVENT DATE: 20191030
